FAERS Safety Report 5110572-X (Version None)
Quarter: 2006Q3

REPORT INFORMATION
  Report Type: 
  Country: None (occurrence: None)
  Receive Date: 20060918
  Receipt Date: 20060830
  Transmission Date: 20061208
  Serious: Yes (Other)
  Sender: FDA-Public Use
  Company Number: 8018400

PATIENT
  Age: 37 Year
  Sex: Male

DRUGS (2)
  1. KEPPRA [Suspect]
     Dosage: 750 MG 2/D PO
     Route: 048
     Dates: start: 20060701
  2. DECADRON [Concomitant]

REACTIONS (3)
  - AGGRESSION [None]
  - HOMICIDAL IDEATION [None]
  - PSYCHOTIC DISORDER [None]
